FAERS Safety Report 20527415 (Version 1)
Quarter: 2022Q1

REPORT INFORMATION
  Report Type: Spontaneous
  Country: MX (occurrence: MX)
  Receive Date: 20220228
  Receipt Date: 20220228
  Transmission Date: 20220423
  Serious: Yes (Other)
  Sender: FDA-Public Use
  Company Number: MX-MLMSERVICE-20220217-3381962-1

PATIENT
  Age: 42 Year
  Sex: Female

DRUGS (2)
  1. DOCETAXEL [Suspect]
     Active Substance: DOCETAXEL
     Indication: Pleomorphic leiomyosarcoma
     Dosage: 75 MG/M2 (ON DAYS 1, EVERY 3 WEEKS; FREQUENCY: 4 CYCLICAL; START DATE: JUN-2020 AND STOP DATE: AUG-2
     Dates: start: 202006, end: 202008
  2. GEMCITABINE [Suspect]
     Active Substance: GEMCITABINE
     Indication: Pleomorphic leiomyosarcoma
     Dosage: 1800 MG/M2 (ON DAYS 1 AND 8, EVERY 3 WEEKS; FREQUENCY: 4 CYCLICAL; START DATE: JUN-2020 AND STOP DAT
     Dates: start: 202006, end: 202008

REACTIONS (2)
  - Drug intolerance [Unknown]
  - Cytopenia [Unknown]

NARRATIVE: CASE EVENT DATE: 20200101
